FAERS Safety Report 14245174 (Version 3)
Quarter: 2018Q1

REPORT INFORMATION
  Report Type: Report from Study
  Country: CO (occurrence: CO)
  Receive Date: 20171202
  Receipt Date: 20180329
  Transmission Date: 20180508
  Serious: Yes (Hospitalization, Other)
  Sender: FDA-Public Use
  Company Number: CO-AMGEN-COLSL2017177093

PATIENT
  Age: 76 Year
  Sex: Female
  Weight: 70 kg

DRUGS (5)
  1. CALCITRIOL. [Concomitant]
     Active Substance: CALCITRIOL
     Indication: OSTEOPOROSIS
     Dosage: 0.5 UNK, QD
  2. PROLIA [Suspect]
     Active Substance: DENOSUMAB
     Indication: OSTEOPOROSIS POSTMENOPAUSAL
     Dosage: 60 MG, Q6MO
     Route: 058
     Dates: start: 20160514
  3. CALCIUM [Concomitant]
     Active Substance: CALCIUM
     Indication: OSTEOPOROSIS
     Dosage: 600 MG, QD
  4. LEVOTHYROXINE. [Concomitant]
     Active Substance: LEVOTHYROXINE
     Indication: HYPOTHYROIDISM
     Dosage: 100 UNK, QD
  5. PROLIA [Suspect]
     Active Substance: DENOSUMAB
     Dosage: UNK
     Route: 065
     Dates: start: 20171003

REACTIONS (1)
  - Cholecystitis [Recovered/Resolved]

NARRATIVE: CASE EVENT DATE: 20171023
